FAERS Safety Report 4595400-3 (Version None)
Quarter: 2005Q1

REPORT INFORMATION
  Report Type: 
  Country: None (occurrence: None)
  Receive Date: 20050228
  Receipt Date: 20050228
  Transmission Date: 20050727
  Serious: Yes (Hospitalization)
  Sender: FDA-Public Use
  Company Number: None

PATIENT
  Age: 55 Year
  Sex: Male

DRUGS (1)
  1. AVASTIN [Suspect]
     Indication: COLORECTAL CANCER
     Dosage: 5 MG/1G IV Q 2 WEEKS
     Route: 042
     Dates: start: 20040801, end: 20040901

REACTIONS (4)
  - COLOSTOMY [None]
  - DECUBITUS ULCER [None]
  - NECROTISING FASCIITIS [None]
  - POST PROCEDURAL COMPLICATION [None]
